FAERS Safety Report 4422491-2 (Version None)
Quarter: 2004Q3

REPORT INFORMATION
  Report Type: 
  Country: None (occurrence: None)
  Receive Date: 20040810
  Receipt Date: 20040802
  Transmission Date: 20050211
  Serious: Yes (Death)
  Sender: FDA-Public Use
  Company Number: PHBS2004FR10490

PATIENT
  Age: 34 Year
  Sex: Male

DRUGS (3)
  1. CLOZAPINE [Suspect]
     Indication: SCHIZOPHRENIA
     Dosage: 300 MG/D
     Route: 065
  2. CLORAZEPATE DIPOTASSIUM [Suspect]
     Dosage: 50 MG/D
  3. NITRAZEPAM [Suspect]
     Dosage: 10 MG/D

REACTIONS (3)
  - ARRHYTHMIA [None]
  - CONGESTIVE CARDIOMYOPATHY [None]
  - SUDDEN DEATH [None]
